FAERS Safety Report 4305764-3 (Version None)
Quarter: 2004Q1

REPORT INFORMATION
  Report Type: 
  Country: None (occurrence: None)
  Receive Date: 20040225
  Receipt Date: 20040218
  Transmission Date: 20041129
  Serious: Yes (Other)
  Sender: FDA-Public Use
  Company Number: DEWYE589318FEB04

PATIENT
  Age: 68 Year
  Sex: Female

DRUGS (2)
  1. RAPAMUNE [Suspect]
     Indication: PROPHYLAXIS AGAINST TRANSPLANT REJECTION
     Dosage: 2.5 MG, ORAL
     Route: 048
     Dates: start: 20010517
  2. URBASON (METHYLPREDNISOLONE) [Concomitant]

REACTIONS (3)
  - CALCIPHYLAXIS [None]
  - PARATHYROIDECTOMY [None]
  - POST PROCEDURAL COMPLICATION [None]
